FAERS Safety Report 6697673-X (Version None)
Quarter: 2010Q2

REPORT INFORMATION
  Report Type: 
  Country: None (occurrence: None)
  Receive Date: 20100426
  Receipt Date: 20100422
  Transmission Date: 20101027
  Serious: Yes (Disabling)
  Sender: FDA-Public Use
  Company Number: US-MERCK-0909USA04049

PATIENT
  Age: 66 Year
  Sex: Female
  Weight: 70 kg

DRUGS (3)
  1. FOSAMAX [Suspect]
     Indication: OSTEOPOROSIS
     Route: 048
     Dates: start: 19990101, end: 20070808
  2. FOSAMAX [Suspect]
     Route: 048
     Dates: start: 20010628
  3. BONIVA [Suspect]
     Indication: OSTEOPOROSIS
     Route: 048
     Dates: start: 20070801, end: 20070901

REACTIONS (17)
  - ARTHRITIS [None]
  - BLOOD CHOLESTEROL INCREASED [None]
  - COMPRESSION FRACTURE [None]
  - FATIGUE [None]
  - FRACTURE [None]
  - INTERVERTEBRAL DISC DEGENERATION [None]
  - JAW DISORDER [None]
  - MELANOCYTIC NAEVUS [None]
  - MUSCLE SPASMS [None]
  - ORAL TORUS [None]
  - OSTEONECROSIS [None]
  - PAIN IN EXTREMITY [None]
  - SCOLIOSIS [None]
  - SPINAL COLUMN STENOSIS [None]
  - SPONDYLOLISTHESIS [None]
  - SYNOVITIS [None]
  - THYROID DISORDER [None]
